FAERS Safety Report 18917795 (Version 4)
Quarter: 2021Q3

REPORT INFORMATION
  Report Type: Spontaneous
  Country: US (occurrence: US)
  Receive Date: 20210219
  Receipt Date: 20210914
  Transmission Date: 20211014
  Serious: No
  Sender: FDA-Public Use
  Company Number: US-PFIZER INC-2021160839

PATIENT
  Age: 78 Year
  Sex: Female
  Weight: 72.56 kg

DRUGS (24)
  1. BOSULIF [Suspect]
     Active Substance: BOSUTINIB MONOHYDRATE
     Indication: ILLNESS
     Dosage: 200 MG, DAILY
     Route: 048
     Dates: start: 20210204
  2. FISH OIL [Concomitant]
     Active Substance: FISH OIL
     Dosage: UNK
  3. POTASSIUM [Concomitant]
     Active Substance: POTASSIUM
     Dosage: UNK
  4. TYLENOL [Concomitant]
     Active Substance: ACETAMINOPHEN
     Dosage: UNK
  5. CYMBALTA [Concomitant]
     Active Substance: DULOXETINE HYDROCHLORIDE
     Dosage: UNK
  6. PROLIA [Concomitant]
     Active Substance: DENOSUMAB
     Dosage: UNK [PROLIA 60 MG/ML SYRINGE]
  7. TURMERIC [CURCUMA LONGA] [Concomitant]
     Active Substance: HERBALS\TURMERIC
     Dosage: UNK (100%)
  8. NORTRIPTYLINE [Concomitant]
     Active Substance: NORTRIPTYLINE
     Dosage: UNK
  9. ASPIRIN [ACETYLSALICYLIC ACID] [Concomitant]
     Active Substance: ASPIRIN
     Dosage: UNK
  10. OMEPRAZOLE. [Concomitant]
     Active Substance: OMEPRAZOLE
     Dosage: 20 MG
  11. SOLIFENACIN [Concomitant]
     Active Substance: SOLIFENACIN
     Dosage: UNK
  12. ONDANSETRON [Concomitant]
     Active Substance: ONDANSETRON
     Dosage: UNK
  13. GLEEVEC [Concomitant]
     Active Substance: IMATINIB MESYLATE
     Dosage: UNK, 1X/DAY
  14. GLUCOSAMINE AND CHONDROITIN [Concomitant]
     Active Substance: CHONDROITIN SULFATE (BOVINE)\GLUCOSAMINE HYDROCHLORIDE
     Dosage: UNK
  15. VITAMIN B12 [Concomitant]
     Active Substance: CYANOCOBALAMIN
     Dosage: UNK
  16. ONE DAILY WOMEN^S [Concomitant]
     Dosage: UNK
  17. DULOXETINE. [Concomitant]
     Active Substance: DULOXETINE
     Dosage: UNK
  18. BONIVA [Concomitant]
     Active Substance: IBANDRONATE SODIUM
     Dosage: 150 MG
  19. CALCIUM [Concomitant]
     Active Substance: CALCIUM
     Dosage: UNK (500)
  20. VITAMIN D3 [Concomitant]
     Active Substance: CHOLECALCIFEROL
     Dosage: UNK
  21. BUDESONIDA, FORMOTEROL [Concomitant]
     Active Substance: BUDESONIDE\FORMOTEROL FUMARATE
     Dosage: UNK
  22. BOSULIF [Suspect]
     Active Substance: BOSUTINIB MONOHYDRATE
     Indication: CHRONIC MYELOID LEUKAEMIA
     Dosage: 500 MG, DAILY
     Route: 048
     Dates: start: 20210204
  23. BOSULIF [Suspect]
     Active Substance: BOSUTINIB MONOHYDRATE
     Indication: CHRONIC MYELOID LEUKAEMIA
  24. OSTEO BI?FLEX EASE [Concomitant]
     Dosage: UNK

REACTIONS (17)
  - Rash [Unknown]
  - Chapped lips [Unknown]
  - Gingival pain [Unknown]
  - Diarrhoea [Not Recovered/Not Resolved]
  - Muscle spasms [Recovering/Resolving]
  - Glossodynia [Unknown]
  - Nausea [Not Recovered/Not Resolved]
  - Weight decreased [Recovering/Resolving]
  - Odynophagia [Unknown]
  - Fatigue [Recovering/Resolving]
  - Abdominal pain upper [Not Recovered/Not Resolved]
  - Decreased appetite [Recovering/Resolving]
  - Pruritus [Recovering/Resolving]
  - Vomiting [Recovering/Resolving]
  - Oral pain [Unknown]
  - Taste disorder [Recovering/Resolving]
  - Tonsillar disorder [Unknown]
